FAERS Safety Report 4592513-7 (Version None)
Quarter: 2005Q1

REPORT INFORMATION
  Report Type: 
  Country: None (occurrence: None)
  Receive Date: 20050222
  Receipt Date: 20041214
  Transmission Date: 20050727
  Serious: Yes (Hospitalization)
  Sender: FDA-Public Use
  Company Number: 2004097025

PATIENT
  Sex: Female

DRUGS (2)
  1. CELEBREX [Suspect]
     Indication: ARTHRITIS
     Dosage: 200 MG
  2. CELEBREX [Suspect]
     Indication: FIBROMYALGIA
     Dosage: 200 MG

REACTIONS (4)
  - BLOOD PRESSURE FLUCTUATION [None]
  - DEPRESSION [None]
  - DIVERTICULITIS [None]
  - GASTRITIS [None]
